FAERS Safety Report 22603837 (Version 1)
Quarter: 2023Q2

REPORT INFORMATION
  Report Type: Spontaneous
  Country: US (occurrence: US)
  Receive Date: 20230615
  Receipt Date: 20230615
  Transmission Date: 20230721
  Serious: Yes (Hospitalization)
  Sender: FDA-Public Use
  Company Number: US-AUROBINDO-AUR-APL-2017-34873

PATIENT
  Age: 52 Year
  Sex: Male

DRUGS (4)
  1. CLONAZEPAM [Suspect]
     Active Substance: CLONAZEPAM
     Indication: Schizoaffective disorder
     Dosage: UNK
     Route: 065
  2. ZIPRASIDONE HYDROCHLORIDE [Suspect]
     Active Substance: ZIPRASIDONE HYDROCHLORIDE
     Indication: Schizoaffective disorder
     Route: 065
  3. LITHIUM [Suspect]
     Active Substance: LITHIUM
     Indication: Schizoaffective disorder
     Route: 065
  4. TRAZODONE [Concomitant]
     Active Substance: TRAZODONE HYDROCHLORIDE
     Indication: Schizoaffective disorder
     Route: 065

REACTIONS (7)
  - Neuroleptic malignant syndrome [Recovered/Resolved]
  - Mental status changes [Recovered/Resolved]
  - Seizure [Recovered/Resolved]
  - Hyperhidrosis [Recovered/Resolved]
  - Confusional state [Recovered/Resolved]
  - Abnormal behaviour [Recovered/Resolved]
  - Body temperature increased [Recovered/Resolved]
